FAERS Safety Report 20187410 (Version 1)
Quarter: 2021Q4

REPORT INFORMATION
  Report Type: Spontaneous
  Country: US (occurrence: None)
  Receive Date: 20211214
  Receipt Date: 20211214
  Transmission Date: 20220303
  Serious: No
  Sender: FDA-Public Use
  Company Number: None

PATIENT
  Sex: Female
  Weight: 54.43 kg

DRUGS (15)
  1. AUSTEDO [Suspect]
     Active Substance: DEUTETRABENAZINE
     Indication: Dyskinesia
     Dosage: FREQUENCY : AT BEDTIME;?
     Route: 048
  2. AUSTEDO [Suspect]
     Active Substance: DEUTETRABENAZINE
     Indication: Dyskinesia
     Dosage: FREQUENCY : BEFORE MEALS;?DOSE OR AMOUNT: 6MG, MORNING, ORAL
     Route: 048
  3. ACETAMINOPHEN [Concomitant]
     Active Substance: ACETAMINOPHEN
  4. ATORVASTATIN [Concomitant]
     Active Substance: ATORVASTATIN
  5. BUPROPION [Concomitant]
     Active Substance: BUPROPION
  6. CLONIDINE [Concomitant]
     Active Substance: CLONIDINE
  7. DILTAZEM [Concomitant]
  8. ELIQUIS [Concomitant]
     Active Substance: APIXABAN
  9. FUROSEMIDE [Concomitant]
     Active Substance: FUROSEMIDE
  10. LOSARTAN [Concomitant]
     Active Substance: LOSARTAN
  11. METOPROLOL [Concomitant]
     Active Substance: METOPROLOL
  12. MODERNA COVID-19 VACCINE [Concomitant]
     Active Substance: ELASOMERAN
  13. RANITIDINE [Concomitant]
     Active Substance: RANITIDINE
  14. SODIUM CHLORIDE [Concomitant]
  15. SPIRONOLACTONE [Concomitant]
     Active Substance: SPIRONOLACTONE

REACTIONS (3)
  - Feeling abnormal [None]
  - Coma [None]
  - Therapy change [None]
